FAERS Safety Report 21458157 (Version 3)
Quarter: 2022Q4

REPORT INFORMATION
  Report Type: Spontaneous
  Country: US (occurrence: US)
  Receive Date: 20221014
  Receipt Date: 20221207
  Transmission Date: 20230112
  Serious: Yes (Other)
  Sender: FDA-Public Use
  Company Number: US-PFIZER INC-PV202200076582

PATIENT
  Sex: Female

DRUGS (1)
  1. PREMARIN [Suspect]
     Active Substance: ESTROGENS, CONJUGATED
     Indication: Postmenopause
     Dosage: 0.5 (NO UNIT), 2X/WEEK
     Dates: start: 20210619, end: 202206

REACTIONS (3)
  - Wrong technique in device usage process [Unknown]
  - Device issue [Unknown]
  - Cystitis [Recovered/Resolved]

NARRATIVE: CASE EVENT DATE: 20220612
